FAERS Safety Report 24306752 (Version 1)
Quarter: 2024Q3

REPORT INFORMATION
  Report Type: Spontaneous
  Country: PL (occurrence: PL)
  Receive Date: 20240911
  Receipt Date: 20240911
  Transmission Date: 20241017
  Serious: Yes (Hospitalization)
  Sender: SANDOZ
  Company Number: PL-POLPHARMA-PPH6001810

PATIENT
  Age: 72 Year
  Sex: Female

DRUGS (13)
  1. AMILORIDE [Suspect]
     Active Substance: AMILORIDE
     Indication: Hypertension
     Dosage: 2.5 MG/DAY
     Route: 065
  2. VENLAFAXINE [Suspect]
     Active Substance: VENLAFAXINE HYDROCHLORIDE
     Indication: Depression
     Dosage: UP TO 75 MG/DAY
     Route: 065
  3. ALLOPURINOL [Concomitant]
     Active Substance: ALLOPURINOL
     Indication: Bipolar disorder
     Dosage: 300 MG/DAY
     Route: 065
  4. EZETIMIBE [Concomitant]
     Active Substance: EZETIMIBE
     Indication: Hypertension
     Dosage: 10 MG/DAY
     Route: 065
  5. LEVOTHYROXINE [Concomitant]
     Active Substance: LEVOTHYROXINE\LEVOTHYROXINE SODIUM
     Indication: Hypothyroidism
     Dosage: 75 MCG/DAY
     Route: 065
  6. RIVAROXABAN [Concomitant]
     Active Substance: RIVAROXABAN
     Indication: Embolism venous
     Dosage: 20 MG/DAY
     Route: 065
  7. ROSUVASTATIN [Concomitant]
     Active Substance: ROSUVASTATIN\ROSUVASTATIN CALCIUM
     Indication: Type V hyperlipidaemia
     Dosage: 20 MG/DAY
     Route: 065
  8. CARBAMAZEPINE [Interacting]
     Active Substance: CARBAMAZEPINE
     Indication: Hypertension
     Dosage: 600 MG/DAY
     Route: 065
  9. HYDROCHLOROTHIAZIDE [Interacting]
     Active Substance: HYDROCHLOROTHIAZIDE
     Indication: Hypertension
     Dosage: 25 MG/DAY
     Route: 065
  10. LITHIUM [Interacting]
     Active Substance: LITHIUM
     Indication: Bipolar disorder
     Dosage: 625 MG/DAY IN TWO DAILY DOSES
     Route: 065
  11. QUETIAPINE [Interacting]
     Active Substance: QUETIAPINE
     Indication: Product used for unknown indication
     Dosage: 25 MG/DAY OVERNIGHT
     Route: 065
  12. TELMISARTAN [Interacting]
     Active Substance: TELMISARTAN
     Indication: Product used for unknown indication
     Dosage: 80MG/DAY
     Route: 065
  13. TORSEMIDE [Interacting]
     Active Substance: TORSEMIDE
     Indication: Gout
     Dosage: 10 MG/DAY
     Route: 065

REACTIONS (9)
  - Toxicity to various agents [Unknown]
  - Asthenia [Unknown]
  - Depressed mood [Unknown]
  - Diarrhoea [Unknown]
  - Tremor [Unknown]
  - Ataxia [Unknown]
  - Anxiety [Unknown]
  - Drug interaction [Unknown]
  - Abdominal pain [Unknown]
